FAERS Safety Report 9613601 (Version 1)
Quarter: 2013Q4

REPORT INFORMATION
  Report Type: Spontaneous
  Country: IT (occurrence: IT)
  Receive Date: 20131010
  Receipt Date: 20131010
  Transmission Date: 20140711
  Serious: Yes (Hospitalization)
  Sender: FDA-Public Use
  Company Number: IT-ROCHE-1286391

PATIENT
  Age: 28 Year
  Sex: Female

DRUGS (4)
  1. AVASTIN [Suspect]
     Indication: CYSTOID MACULAR OEDEMA
     Route: 031
     Dates: start: 20130911, end: 20130911
  2. ZITROMAX [Suspect]
     Indication: ANTIBIOTIC PROPHYLAXIS
     Route: 048
     Dates: start: 20130828, end: 20130912
  3. AULIN [Suspect]
     Indication: HEADACHE
     Route: 048
     Dates: start: 20130827, end: 20130827
  4. HUMALOG [Concomitant]
     Indication: DIABETES MELLITUS
     Route: 058

REACTIONS (2)
  - Angioedema [Not Recovered/Not Resolved]
  - Erythema [Not Recovered/Not Resolved]
